FAERS Safety Report 5443244-2 (Version None)
Quarter: 2007Q3

REPORT INFORMATION
  Report Type: 
  Country: None (occurrence: None)
  Receive Date: 20070831
  Receipt Date: 20070831
  Transmission Date: 20080115
  Serious: Yes (Life-Threatening, Hospitalization)
  Sender: FDA-Public Use
  Company Number: None

PATIENT
  Age: 46 Year
  Sex: Male

DRUGS (2)
  1. QUETIAPINE FUMARATE [Suspect]
     Indication: BIPOLAR I DISORDER
     Dosage: 600MG BID PO
     Route: 048
     Dates: start: 20070416, end: 20070810
  2. LITHIUM CARBONATE [Suspect]
     Dosage: 600MG BID PO
     Route: 048
     Dates: start: 20070416, end: 20070810

REACTIONS (8)
  - ANURIA [None]
  - HAEMODIALYSIS [None]
  - HYPERHIDROSIS [None]
  - INTENTIONAL OVERDOSE [None]
  - MULTIPLE DRUG OVERDOSE [None]
  - RESPIRATORY FAILURE [None]
  - RESTLESSNESS [None]
  - SOMNOLENCE [None]
